FAERS Safety Report 20339847 (Version 1)
Quarter: 2022Q1

REPORT INFORMATION
  Report Type: Spontaneous
  Country: US (occurrence: US)
  Receive Date: 20220117
  Receipt Date: 20220117
  Transmission Date: 20220423
  Serious: Yes (Hospitalization)
  Sender: FDA-Public Use
  Company Number: US-GSKCCFUS-Case-01264615_AE-73985

PATIENT
  Sex: Male

DRUGS (1)
  1. BREO ELLIPTA [Suspect]
     Active Substance: FLUTICASONE FUROATE\VILANTEROL TRIFENATATE
     Indication: Product used for unknown indication
     Dosage: UNK, QD 200/25MCG
     Route: 055

REACTIONS (3)
  - Hospitalisation [Recovered/Resolved]
  - Product dose omission issue [Not Recovered/Not Resolved]
  - Expired product administered [Recovered/Resolved]
